FAERS Safety Report 25553029 (Version 2)
Quarter: 2025Q3

REPORT INFORMATION
  Report Type: Report from Study
  Country: US (occurrence: US)
  Receive Date: 20250715
  Receipt Date: 20250811
  Transmission Date: 20251020
  Serious: Yes (Other)
  Sender: TAKEDA
  Company Number: US-TAKEDA-2025TUS054566

PATIENT
  Sex: Male

DRUGS (8)
  1. PONATINIB [Suspect]
     Active Substance: PONATINIB
     Indication: Chronic myeloid leukaemia
     Dosage: 45 MILLIGRAM, QD
     Dates: start: 20250612
  2. PONATINIB [Suspect]
     Active Substance: PONATINIB
     Indication: Hyperuricaemia
  3. METAMUCIL [Concomitant]
     Active Substance: PLANTAGO SEED
  4. MILK OF MAGNESIA [Concomitant]
     Active Substance: MAGNESIUM HYDROXIDE
  5. ELIQUIS [Concomitant]
     Active Substance: APIXABAN
  6. METOPROLOL SUCCINATE [Concomitant]
     Active Substance: METOPROLOL SUCCINATE
  7. LINZESS [Concomitant]
     Active Substance: LINACLOTIDE
  8. PREDNISONE [Concomitant]
     Active Substance: PREDNISONE

REACTIONS (11)
  - Philadelphia chromosome positive [Unknown]
  - Atrial fibrillation [Unknown]
  - Feeling of body temperature change [Unknown]
  - Back disorder [Unknown]
  - Drug ineffective [Unknown]
  - Vision blurred [Unknown]
  - Prostatitis [Unknown]
  - Gait disturbance [Unknown]
  - Chills [Unknown]
  - Constipation [Unknown]
  - Dyspnoea [Unknown]
